FAERS Safety Report 8905598 (Version 1)
Quarter: 2012Q4

REPORT INFORMATION
  Report Type: 
  Country: US (occurrence: US)
  Receive Date: 20121113
  Receipt Date: 20121113
  Transmission Date: 20130627
  Serious: No
  Sender: FDA-Public Use
  Company Number: US-ASTRAZENECA-2012SE83553

PATIENT
  Age: 66 Year
  Sex: Female
  Weight: 56.7 kg

DRUGS (2)
  1. FASLODEX [Suspect]
     Indication: BREAST CANCER METASTATIC
     Route: 030
     Dates: start: 201107
  2. LORAZEPAM [Concomitant]
     Indication: ANXIETY

REACTIONS (3)
  - Nasal congestion [Unknown]
  - Sinus disorder [Unknown]
  - Rhinorrhoea [Unknown]
